FAERS Safety Report 13714478 (Version 1)
Quarter: 2017Q3

REPORT INFORMATION
  Report Type: Spontaneous
  Country: CA (occurrence: CA)
  Receive Date: 20170704
  Receipt Date: 20170704
  Transmission Date: 20171127
  Serious: Yes (Other)
  Sender: FDA-Public Use
  Company Number: PHHY2017CA094850

PATIENT
  Age: 46 Year
  Sex: Female
  Weight: 59 kg

DRUGS (5)
  1. EXTAVIA [Suspect]
     Active Substance: INTERFERON BETA-1B
     Indication: RELAPSING-REMITTING MULTIPLE SCLEROSIS
     Dosage: 8.0 M, QOD (1 EVERY 2 DAYS)
     Route: 058
  2. EXTAVIA [Suspect]
     Active Substance: INTERFERON BETA-1B
     Dosage: 8.0 M, 3 EVERY 1 WEEK
     Route: 058
  3. EXTAVIA [Suspect]
     Active Substance: INTERFERON BETA-1B
     Dosage: 8.0 M, TID (3 EVERY 1 DAYS)
     Route: 058
  4. EXTAVIA [Suspect]
     Active Substance: INTERFERON BETA-1B
     Dosage: 8.0 M, QOD (1 EVERY 2 DAYS)
     Route: 058
  5. EXTAVIA [Suspect]
     Active Substance: INTERFERON BETA-1B
     Dosage: 4.0 M, QOD (1 EVERY 2 DAYS)
     Route: 058

REACTIONS (13)
  - Underdose [Recovering/Resolving]
  - Influenza like illness [Unknown]
  - Multiple sclerosis relapse [Recovering/Resolving]
  - Road traffic accident [Recovering/Resolving]
  - Memory impairment [Unknown]
  - Injection site pain [Unknown]
  - Headache [Unknown]
  - Anxiety [Recovering/Resolving]
  - Aphthous ulcer [Unknown]
  - Poor quality sleep [Unknown]
  - Product use issue [Unknown]
  - Pain [Unknown]
  - Feeling abnormal [Unknown]
